FAERS Safety Report 19797709 (Version 1)
Quarter: 2021Q3

REPORT INFORMATION
  Report Type: Spontaneous
  Country: US (occurrence: US)
  Receive Date: 20210901
  Receipt Date: 20210901
  Transmission Date: 20211014
  Serious: No
  Sender: FDA-Public Use
  Company Number: None

PATIENT
  Age: 72 Year
  Sex: Male

DRUGS (10)
  1. AMLODIPINE [Concomitant]
     Active Substance: AMLODIPINE BESYLATE
  2. COMPAZINE [Concomitant]
     Active Substance: PROCHLORPERAZINE MALEATE
  3. CRESTOR 40MG [Concomitant]
  4. ONDANSETRON ODT 8MG [Concomitant]
     Active Substance: ONDANSETRON
  5. METOPROLOL 50MG [Concomitant]
     Active Substance: METOPROLOL
  6. OMEPRAZOLE 20MG [Concomitant]
     Active Substance: OMEPRAZOLE
  7. TEMOZOLOMIDE CAP 180MG [Suspect]
     Active Substance: TEMOZOLOMIDE
     Indication: BRAIN NEOPLASM MALIGNANT
     Dosage: ?          OTHER FREQUENCY:UNKNOWN;?
     Route: 048
  8. ZETIA [Concomitant]
     Active Substance: EZETIMIBE
  9. LEVOTHYROXINE 25MCG [Concomitant]
     Active Substance: LEVOTHYROXINE
  10. POTASSIUM CL CR [Concomitant]

REACTIONS (1)
  - Blood glucose decreased [None]

NARRATIVE: CASE EVENT DATE: 20210831
